FAERS Safety Report 18062170 (Version 8)
Quarter: 2020Q4

REPORT INFORMATION
  Report Type: Spontaneous
  Country: CA (occurrence: CA)
  Receive Date: 20200723
  Receipt Date: 20201218
  Transmission Date: 20210113
  Serious: Yes (Other)
  Sender: FDA-Public Use
  Company Number: CA-PFIZER INC-2019486795

PATIENT
  Age: 85 Year
  Sex: Female
  Weight: 99.77 kg

DRUGS (8)
  1. XELJANZ [Suspect]
     Active Substance: TOFACITINIB CITRATE
     Dosage: 10 MG, 2X/DAY (5MG, 2 PILLS BID)
     Route: 048
     Dates: start: 20200814, end: 20200827
  2. XELJANZ [Suspect]
     Active Substance: TOFACITINIB CITRATE
     Dosage: 10 MG, 2X/DAY
     Route: 048
     Dates: start: 2020
  3. XELJANZ [Suspect]
     Active Substance: TOFACITINIB CITRATE
     Indication: RHEUMATOID ARTHRITIS
     Dosage: 5 MG, 2X/DAY (STOPPED X 2-3 DAYS)
     Route: 048
     Dates: start: 2019, end: 2020
  4. XELJANZ [Suspect]
     Active Substance: TOFACITINIB CITRATE
     Dosage: 5 MG, 2X/DAY (STAND BY)
     Route: 048
     Dates: start: 2020, end: 20200730
  5. SULFASALAZINE. [Concomitant]
     Active Substance: SULFASALAZINE
     Dosage: 1 G, 2X/DAY
     Route: 065
     Dates: start: 201605
  6. ASPIRIN [ACETYLSALICYLIC ACID] [Concomitant]
     Active Substance: ASPIRIN
     Dosage: UNK
     Route: 065
  7. SENOKOT [Concomitant]
     Active Substance: SENNOSIDES
     Dosage: UNK
     Route: 065
  8. XELJANZ [Suspect]
     Active Substance: TOFACITINIB CITRATE
     Dosage: 5 MG, 2X/DAY
     Route: 048
     Dates: start: 20200828, end: 2020

REACTIONS (15)
  - Malaise [Unknown]
  - Heart rate increased [Recovering/Resolving]
  - Palpitations [Not Recovered/Not Resolved]
  - Blindness [Unknown]
  - Blood pressure systolic increased [Unknown]
  - Glaucoma [Unknown]
  - Product dose omission issue [Unknown]
  - Intentional product use issue [Unknown]
  - Cough [Unknown]
  - Memory impairment [Unknown]
  - Drug ineffective [Unknown]
  - Therapeutic product effect incomplete [Unknown]
  - Nausea [Unknown]
  - Cataract [Not Recovered/Not Resolved]
  - Pain [Not Recovered/Not Resolved]

NARRATIVE: CASE EVENT DATE: 20200814
